FAERS Safety Report 4302401-9 (Version None)
Quarter: 2004Q1

REPORT INFORMATION
  Report Type: 
  Country: None (occurrence: None)
  Receive Date: 20040223
  Receipt Date: 20040223
  Transmission Date: 20041129
  Serious: No
  Sender: FDA-Public Use
  Company Number: None

PATIENT
  Age: 80 Year
  Sex: Female
  Weight: 48.5349 kg

DRUGS (1)
  1. ANGIOMAX [Suspect]
     Indication: STENT PLACEMENT
     Dosage: BOLUS 37.5 MG 90MG/HR CONTINUOUS
     Dates: start: 20040220

REACTIONS (1)
  - LABORATORY TEST ABNORMAL [None]
